FAERS Safety Report 5020809-3 (Version None)
Quarter: 2006Q2

REPORT INFORMATION
  Report Type: 
  Country: None (occurrence: None)
  Receive Date: 20060608
  Receipt Date: 20051013
  Transmission Date: 20061013
  Serious: Yes (Other)
  Sender: FDA-Public Use
  Company Number: US-BRISTOL-MYERS SQUIBB COMPANY-13145230

PATIENT
  Sex: Female

DRUGS (4)
  1. ESTRADIOL [Suspect]
     Indication: HORMONE THERAPY
     Route: 048
  2. PREMPRO [Suspect]
     Indication: HORMONE THERAPY
     Route: 048
  3. CYCRIN [Suspect]
     Indication: HORMONE THERAPY
     Route: 048
  4. PROVERA [Suspect]
     Indication: HORMONE THERAPY
     Route: 048

REACTIONS (1)
  - BREAST CANCER [None]
